FAERS Safety Report 9948475 (Version 1)
Quarter: 2014Q1

REPORT INFORMATION
  Report Type: Report from Study
  Country: US (occurrence: US)
  Receive Date: 20140303
  Receipt Date: 20140303
  Transmission Date: 20141002
  Serious: No
  Sender: FDA-Public Use
  Company Number: US-ABBVIE-13P-163-1061545-00

PATIENT
  Age: 62 Year
  Sex: Female

DRUGS (9)
  1. HUMIRA [Suspect]
     Indication: CROHN^S DISEASE
     Dates: start: 20130201, end: 20130216
  2. HUMIRA [Suspect]
     Dates: start: 20130216, end: 20130302
  3. HUMIRA [Suspect]
     Dates: start: 20130302
  4. IMURAN [Concomitant]
     Indication: CROHN^S DISEASE
     Dosage: 50MG DAILY
  5. CIPROFLOXACIN [Concomitant]
     Indication: CROHN^S DISEASE
  6. ATIVAN [Concomitant]
     Indication: ANXIETY
  7. FOLIC ACID [Concomitant]
     Indication: PRODUCT USED FOR UNKNOWN INDICATION
     Dosage: DAILY
  8. VITAMIN B12 [Concomitant]
     Indication: PRODUCT USED FOR UNKNOWN INDICATION
  9. VITAMIN D [Concomitant]
     Indication: PRODUCT USED FOR UNKNOWN INDICATION
     Dosage: DAILY

REACTIONS (6)
  - Diarrhoea [Recovered/Resolved]
  - Nausea [Recovered/Resolved]
  - Diarrhoea [Recovered/Resolved]
  - Nausea [Recovered/Resolved]
  - Diarrhoea [Recovered/Resolved]
  - Nausea [Recovered/Resolved]
